FAERS Safety Report 5058042-1 (Version None)
Quarter: 2006Q3

REPORT INFORMATION
  Report Type: 
  Country: None (occurrence: None)
  Receive Date: 20060721
  Receipt Date: 20060516
  Transmission Date: 20061208
  Serious: No
  Sender: FDA-Public Use
  Company Number: US-GLAXOSMITHKLINE-A0606860A

PATIENT
  Sex: Female

DRUGS (2)
  1. AVANDIA [Suspect]
     Indication: INSULIN RESISTANCE
     Route: 048
  2. METFORMIN [Suspect]
     Indication: INSULIN RESISTANCE
     Route: 048

REACTIONS (2)
  - LABORATORY TEST ABNORMAL [None]
  - MALAISE [None]
